FAERS Safety Report 26212042 (Version 1)
Quarter: 2025Q4

REPORT INFORMATION
  Report Type: Spontaneous
  Country: GB (occurrence: GB)
  Receive Date: 20251230
  Receipt Date: 20251230
  Transmission Date: 20260119
  Serious: Yes (Other)
  Sender: RANBAXY
  Company Number: GB-MHRA-TPP22756376C10332523YC1765892450160

PATIENT
  Age: 44 Year
  Sex: Male
  Weight: 15 kg

DRUGS (2)
  1. CODEINE [Suspect]
     Active Substance: CODEINE
     Indication: Product used for unknown indication
     Dosage: 30 MILLIGRAM
     Route: 065
  2. TRAMADOL [Concomitant]
     Active Substance: TRAMADOL
     Indication: Product used for unknown indication
     Dosage: UNK, TAKETAKE 1  EVERY 4-6 HRS AS REQUIRED FOR PAIN 1  EVERY 4-6 HRS AS REQUIRED FOR PAIN
     Route: 065
     Dates: start: 20251001, end: 20251013

REACTIONS (1)
  - Depressed mood [Recovered/Resolved]

NARRATIVE: CASE EVENT DATE: 20251216
